FAERS Safety Report 7299532-0 (Version None)
Quarter: 2010Q4

REPORT INFORMATION
  Report Type: 
  Country: None (occurrence: None)
  Receive Date: 20101223
  Receipt Date: 20100308
  Transmission Date: 20110411
  Serious: Yes (Hospitalization, Other)
  Sender: FDA-Public Use
  Company Number: 221400USA

PATIENT
  Sex: Female

DRUGS (6)
  1. PARAGARD T 380A [Suspect]
     Indication: CONTRACEPTION
     Dosage: I.U.
     Dates: start: 19970924, end: 19981130
  2. PARAGARD T 380A [Suspect]
     Indication: CONTRACEPTION
     Dosage: I.U.
     Dates: start: 19990907, end: 20090908
  3. OMEPRAZOLE [Concomitant]
  4. ZOLPIDEM [Concomitant]
  5. FLUOXETINE HYDROCHLORIDE [Concomitant]
  6. LAMOTRIGINE [Concomitant]

REACTIONS (2)
  - DEVICE DISLOCATION [None]
  - MEDICAL DEVICE COMPLICATION [None]
